FAERS Safety Report 8052871-8 (Version None)
Quarter: 2012Q1

REPORT INFORMATION
  Report Type: 
  Country: None (occurrence: None)
  Receive Date: 20120118
  Receipt Date: 20120111
  Transmission Date: 20120608
  Serious: Yes (Other)
  Sender: FDA-Public Use
  Company Number: PHHO2011NL03784

PATIENT
  Sex: Male
  Weight: 79 kg

DRUGS (5)
  1. PROGRAF [Suspect]
     Indication: RENAL TRANSPLANT
     Dosage: 2 X 1^5
     Route: 048
     Dates: start: 20110504
  2. SOTALOL HCL [Concomitant]
     Dosage: 1 X 10
     Dates: start: 20110214
  3. MYFORTIC [Suspect]
     Indication: RENAL TRANSPLANT
     Dosage: 2 X 360
     Route: 048
     Dates: start: 20110203
  4. CERTICAN [Suspect]
     Indication: RENAL TRANSPLANT
     Dosage: 2 DF, BID
     Route: 048
     Dates: start: 20110413, end: 20110503
  5. SOTALOL HCL [Concomitant]
     Indication: ATRIAL FIBRILLATION
     Dosage: 1 X 10
     Dates: start: 20070101

REACTIONS (2)
  - ATRIAL FIBRILLATION [None]
  - ANGINA UNSTABLE [None]
